FAERS Safety Report 21443557 (Version 2)
Quarter: 2023Q2

REPORT INFORMATION
  Report Type: Spontaneous
  Country: US (occurrence: US)
  Receive Date: 20221012
  Receipt Date: 20230518
  Transmission Date: 20230722
  Serious: No
  Sender: FDA-Public Use
  Company Number: US-drreddys-SPO/USA/22/0155022

PATIENT
  Age: 17 Year
  Sex: Female

DRUGS (2)
  1. ZENATANE [Suspect]
     Active Substance: ISOTRETINOIN
     Indication: Product used for unknown indication
     Dosage: RMA ISSUE DATE: 02/AUGUST/2022 06:24:45 PM, 06/SEPTEMBER/2022 04:21:29 PM, 06/OCTOBER/2022 04:01:43
     Dates: start: 20220406
  2. ZENATANE [Suspect]
     Active Substance: ISOTRETINOIN
     Dosage: RMA ISSUE DATE: 06/MAY/2022 08:59:26 AM, 01/JUNE/2022 12:41:03 PM, 29/JUNE/2022 02:12:27 PM
     Dates: start: 20220905

REACTIONS (3)
  - Back pain [Unknown]
  - Abdominal pain [Unknown]
  - Abdominal discomfort [Unknown]

NARRATIVE: CASE EVENT DATE: 20220905
